FAERS Safety Report 8033053-2 (Version None)
Quarter: 2012Q1

REPORT INFORMATION
  Report Type: 
  Country: None (occurrence: None)
  Receive Date: 20120110
  Receipt Date: 20120104
  Transmission Date: 20120608
  Serious: Yes (Other)
  Sender: FDA-Public Use
  Company Number: US-PFIZER INC-2012003193

PATIENT
  Sex: Female

DRUGS (4)
  1. XALATAN [Suspect]
     Dosage: UNK
  2. CELEBREX [Suspect]
     Dosage: UNK
  3. ZOLOFT [Suspect]
     Dosage: UNK
  4. CARDURA [Suspect]
     Dosage: UNK

REACTIONS (4)
  - DISORIENTATION [None]
  - DEPRESSION [None]
  - ANXIETY [None]
  - DEAFNESS [None]
